FAERS Safety Report 5380949-6 (Version None)
Quarter: 2007Q3

REPORT INFORMATION
  Report Type: 
  Country: None (occurrence: None)
  Receive Date: 20070706
  Receipt Date: 20070627
  Transmission Date: 20080115
  Serious: Yes (Death)
  Sender: FDA-Public Use
  Company Number: AU-SANOFI-SYNTHELABO-A01200706891

PATIENT
  Age: 58 Year
  Sex: Male

DRUGS (1)
  1. ZOLPIDEM TARTRATE [Suspect]
     Indication: INSOMNIA
     Dosage: 20 MG
     Route: 048
     Dates: start: 20060715, end: 20060915

REACTIONS (5)
  - AMNESIA [None]
  - ANXIETY [None]
  - COMPLETED SUICIDE [None]
  - DRUG ABUSER [None]
  - MENTAL DISORDER [None]
